FAERS Safety Report 13054778 (Version 2)
Quarter: 2017Q1

REPORT INFORMATION
  Report Type: Spontaneous
  Country: BR (occurrence: BR)
  Receive Date: 20161222
  Receipt Date: 20170224
  Transmission Date: 20170428
  Serious: Yes (Other)
  Sender: FDA-Public Use
  Company Number: BR-ALEXION PHARMACEUTICALS INC-A201610005

PATIENT
  Age: 31 Year
  Sex: Male
  Weight: 104 kg

DRUGS (5)
  1. SOLIRIS [Suspect]
     Active Substance: ECULIZUMAB
     Indication: PAROXYSMAL NOCTURNAL HAEMOGLOBINURIA
     Dosage: 600 MG, UNK
     Route: 042
     Dates: start: 20131205, end: 20131226
  2. PREDNISONE. [Concomitant]
     Active Substance: PREDNISONE
     Indication: PRODUCT USED FOR UNKNOWN INDICATION
     Dosage: 60 MG, QD
     Route: 048
     Dates: start: 20161128
  3. PREDNISONE. [Concomitant]
     Active Substance: PREDNISONE
     Dosage: 20 MG, UNK
     Route: 065
     Dates: start: 20170214
  4. SOLIRIS [Suspect]
     Active Substance: ECULIZUMAB
     Dosage: 900 MG, UNK
     Route: 042
     Dates: start: 20140107
  5. PREDNISONE. [Concomitant]
     Active Substance: PREDNISONE
     Dosage: 40 MG, UNK
     Route: 065
     Dates: start: 20170216

REACTIONS (4)
  - Ocular icterus [Not Recovered/Not Resolved]
  - Haemolysis [Unknown]
  - Fatigue [Not Recovered/Not Resolved]
  - Abdominal distension [Unknown]

NARRATIVE: CASE EVENT DATE: 20161208
